FAERS Safety Report 15224829 (Version 1)
Quarter: 2018Q4

REPORT INFORMATION
  Report Type: Spontaneous
  Country: ES (occurrence: ES)
  Receive Date: 20180731
  Receipt Date: 20180731
  Transmission Date: 20190204
  Serious: Yes (Hospitalization)
  Sender: FDA-Public Use
  Company Number: ES-ABBVIE-18S-144-2436150-00

PATIENT
  Age: 19 Year
  Sex: Male
  Weight: 90 kg

DRUGS (6)
  1. CLARITHROMYCIN. [Suspect]
     Active Substance: CLARITHROMYCIN
     Indication: HELICOBACTER GASTRITIS
     Dosage: 1/12H
     Route: 048
     Dates: start: 20180124, end: 20180208
  2. CYMBALTA [Concomitant]
     Active Substance: DULOXETINE HYDROCHLORIDE
     Indication: CHRONIC FATIGUE SYNDROME
     Dosage: 1/24H
     Route: 048
     Dates: start: 20161110
  3. NOCTAMID [Concomitant]
     Active Substance: LORMETAZEPAM
     Indication: INSOMNIA
     Dosage: 1/24H?TIME INTERVAL BETWEEN BEGINNING OF DRUG ADMINISTRATION AND START OF REACTION/E
     Route: 048
     Dates: start: 20161111
  4. ORLISTAT TEVA [Suspect]
     Active Substance: ORLISTAT
     Indication: WEIGHT DECREASED
     Dosage: 1/8H
     Route: 048
     Dates: start: 20180201, end: 20180309
  5. AMOXICILINA NORMON [Suspect]
     Active Substance: AMOXICILLIN
     Indication: HELICOBACTER GASTRITIS
     Dosage: 1/12H
     Route: 048
     Dates: start: 20180125, end: 20180208
  6. OPIREN [Concomitant]
     Active Substance: LANSOPRAZOLE
     Indication: EOSINOPHILIC OESOPHAGITIS
     Dosage: 1/12H
     Route: 048
     Dates: start: 20170101

REACTIONS (2)
  - Abdominal pain upper [Not Recovered/Not Resolved]
  - Nausea [Recovering/Resolving]

NARRATIVE: CASE EVENT DATE: 20180201
